FAERS Safety Report 18147910 (Version 2)
Quarter: 2020Q3

REPORT INFORMATION
  Report Type: Spontaneous
  Country: RU (occurrence: RU)
  Receive Date: 20200813
  Receipt Date: 20200825
  Transmission Date: 20201103
  Serious: Yes (Life-Threatening)
  Sender: FDA-Public Use
  Company Number: RU-JNJFOC-20200811266

PATIENT
  Age: 8 Year
  Sex: Male
  Weight: 33 kg

DRUGS (2)
  1. REMICADE [Suspect]
     Active Substance: INFLIXIMAB
     Route: 042
     Dates: start: 20200518
  2. REMICADE [Suspect]
     Active Substance: INFLIXIMAB
     Indication: COLITIS ULCERATIVE
     Dosage: REMICADE IS ADMINISTERED BY AN INDUCTION COURSE: AT THE BEGINNING OF THERAPY ? ONCE EVERY TWO?WEEKS,
     Route: 042
     Dates: start: 20200409

REACTIONS (6)
  - Hypersensitivity [Unknown]
  - Infusion related reaction [Recovering/Resolving]
  - Drug specific antibody [Unknown]
  - Off label use [Unknown]
  - Anaphylactic reaction [Recovering/Resolving]
  - Product use issue [Unknown]

NARRATIVE: CASE EVENT DATE: 20200409
